FAERS Safety Report 4498419-6 (Version None)
Quarter: 2004Q4

REPORT INFORMATION
  Report Type: 
  Country: None (occurrence: None)
  Receive Date: 20041105
  Receipt Date: 20041025
  Transmission Date: 20050328
  Serious: Yes (Hospitalization)
  Sender: FDA-Public Use
  Company Number: 2004083821

PATIENT
  Age: 53 Year
  Sex: Male

DRUGS (9)
  1. NEURONTIN [Suspect]
     Indication: ILL-DEFINED DISORDER
     Dosage: 1200 MG (1 D), ORAL
     Route: 048
     Dates: start: 20021101
  2. LISINOPRIL [Suspect]
     Indication: ILL-DEFINED DISORDER
     Dosage: 20 MG (1 D)
     Dates: start: 20021101
  3. HYDROCHLOROTHIAZIDE [Suspect]
     Indication: ILL-DEFINED DISORDER
     Dosage: 12.5 MG (1 D)
     Dates: start: 20021101
  4. BACLOFEN [Suspect]
     Indication: ILL-DEFINED DISORDER
     Dosage: 5 MG (1 D)
     Dates: start: 20021101
  5. PANTOPRAZOLE SODIUM [Suspect]
     Indication: ILL-DEFINED DISORDER
     Dosage: 20 MG (1 D)
     Dates: start: 20021101
  6. INTERFERON BETA (INTERFERON BETA) [Suspect]
     Indication: ILL-DEFINED DISORDER
     Dosage: 1 AMPULE (2 D), SUBCUTANEOUS
     Route: 058
     Dates: start: 20021101
  7. AMITRIPTYLINE HYDROCHLORIDE [Concomitant]
  8. CARBAMAZEPINE [Concomitant]
  9. ZOPICLONE (ZOPICLONE) [Concomitant]

REACTIONS (9)
  - BLOOD GLUCOSE FLUCTUATION [None]
  - DIABETES MELLITUS [None]
  - DIZZINESS [None]
  - DRUG INEFFECTIVE [None]
  - DRUG INTERACTION [None]
  - FALL [None]
  - GRAND MAL CONVULSION [None]
  - HYPOGLYCAEMIA [None]
  - STATUS EPILEPTICUS [None]
